FAERS Safety Report 7525658-X (Version None)
Quarter: 2011Q2

REPORT INFORMATION
  Report Type: 
  Country: None (occurrence: None)
  Receive Date: 20110526
  Receipt Date: 20110513
  Transmission Date: 20111010
  Serious: Yes (Hospitalization)
  Sender: FDA-Public Use
  Company Number: 2011MA005889

PATIENT
  Age: 13 Year
  Sex: Female

DRUGS (8)
  1. AMOXICILLIN [Concomitant]
  2. FAMOTIDINE [Concomitant]
  3. PHENOBARBITAL TAB [Concomitant]
  4. AMITRIPTYLINE HYDROCHLORIDE [Concomitant]
  5. ACEBUTOLOL [Concomitant]
  6. AMPHOTERICIN B [Concomitant]
  7. NIFEDIPINE [Suspect]
     Indication: HYPERTENSION
  8. OMEPRAZOLE [Concomitant]

REACTIONS (14)
  - CHROMATURIA [None]
  - BLOOD UREA INCREASED [None]
  - BRAIN OEDEMA [None]
  - PORPHYRIA ACUTE [None]
  - PERIPHERAL MOTOR NEUROPATHY [None]
  - HYPONATRAEMIA [None]
  - HEPATIC ENZYME INCREASED [None]
  - GRAND MAL CONVULSION [None]
  - CONDITION AGGRAVATED [None]
  - AXONAL NEUROPATHY [None]
  - IRRITABILITY [None]
  - DEPRESSION [None]
  - WEIGHT DECREASED [None]
  - GASTRITIS [None]
